FAERS Safety Report 5028905-1 (Version None)
Quarter: 2006Q2

REPORT INFORMATION
  Report Type: 
  Country: None (occurrence: None)
  Receive Date: 20060619
  Receipt Date: 20060614
  Transmission Date: 20061013
  Serious: Yes (Other)
  Sender: FDA-Public Use
  Company Number: BPC-ZN-06-285

PATIENT
  Age: 50 Year
  Sex: Female
  Weight: 70.5 kg

DRUGS (1)
  1. ZYBAN [Suspect]
     Dosage: 150MG UNKNOWN
     Route: 048
     Dates: start: 20020101, end: 20020101

REACTIONS (2)
  - DYSPNOEA [None]
  - HYPOTHYROIDISM [None]
